FAERS Safety Report 4493918-5 (Version None)
Quarter: 2004Q4

REPORT INFORMATION
  Report Type: 
  Country: None (occurrence: None)
  Receive Date: 20041105
  Receipt Date: 20041025
  Transmission Date: 20050328
  Serious: Yes (Other)
  Sender: FDA-Public Use
  Company Number: DE-BRISTOL-MYERS SQUIBB COMPANY-12745717

PATIENT
  Age: 52 Year
  Sex: Female
  Weight: 80 kg

DRUGS (3)
  1. AMPHO-MORONAL LOZENGE [Suspect]
     Indication: ORAL CANDIDIASIS
     Dosage: 1 TBL (TABLESPOON)
     Route: 048
     Dates: start: 20041018
  2. CAPTOPRIL STADA [Concomitant]
     Indication: HYPERTENSION
  3. HCT-BETA [Concomitant]
     Indication: HYPERTENSION
     Dosage: AUTUMN
     Dates: start: 20030101, end: 20040901

REACTIONS (3)
  - ANGIONEUROTIC OEDEMA [None]
  - DYSPNOEA [None]
  - EMOTIONAL DISORDER [None]
